FAERS Safety Report 6923215-7 (Version None)
Quarter: 2010Q3

REPORT INFORMATION
  Report Type: 
  Country: None (occurrence: None)
  Receive Date: 20100813
  Receipt Date: 20100804
  Transmission Date: 20110219
  Serious: Yes (Other)
  Sender: FDA-Public Use
  Company Number: MX-ROCHE-717182

PATIENT
  Sex: Female
  Weight: 73 kg

DRUGS (13)
  1. TOCILIZUMAB [Suspect]
     Indication: RHEUMATOID ARTHRITIS
     Dosage: TOTAL MONTHLY:584 MG, DOSE PRIOR TO SAE WAS 23 JUNE 2010 TEMPORARILY DISCONTINUED , FORM :INFUSION
     Route: 042
     Dates: start: 20050817, end: 20100624
  2. TOCILIZUMAB [Suspect]
     Dosage: DOSE INTERRUPTED
     Route: 042
     Dates: end: 20100714
  3. BLINDED TOCILIZUMAB [Suspect]
     Indication: RHEUMATOID ARTHRITIS
     Dosage: PATIENT WAS PREVIOUSLY ENROLLED IN STUDY WA17822
     Route: 042
  4. CAPTOPRIL [Concomitant]
     Dates: start: 20011122, end: 20060925
  5. METOPROLOL TARTRATE [Concomitant]
     Dates: start: 20050120
  6. CALCIUM [Concomitant]
     Dates: start: 20050719
  7. CELECOXIB [Concomitant]
     Dates: start: 20060411
  8. DICLOFENAC SODIUM [Concomitant]
     Route: 048
     Dates: start: 20070201
  9. PREDNISOLONE [Concomitant]
     Dates: start: 20091026
  10. DIOVAN HCT [Concomitant]
     Dosage: VAISARTAN 160 MG
     Dates: start: 20090225
  11. AMLODIPINE [Concomitant]
     Dates: start: 20090225
  12. SOMALGESIC [Concomitant]
     Dosage: CARISOPRODOL 200 MG
     Dates: start: 20090225
  13. ANAPSIQUE [Concomitant]
     Dosage: TDD:1/2 TAB
     Dates: start: 20100617

REACTIONS (2)
  - GASTROINTESTINAL HAEMORRHAGE [None]
  - INTESTINAL PERFORATION [None]
